FAERS Safety Report 10863078 (Version 1)
Quarter: 2015Q1

REPORT INFORMATION
  Report Type: Report from Study
  Country: DE (occurrence: DE)
  Receive Date: 20150224
  Receipt Date: 20150224
  Transmission Date: 20150721
  Serious: Yes (Death, Hospitalization)
  Sender: FDA-Public Use
  Company Number: DE-ABBVIE-14P-062-1313746-00

PATIENT
  Sex: Male

DRUGS (1)
  1. DUODOPA [Suspect]
     Active Substance: CARBIDOPA\LEVODOPA
     Indication: PARKINSON^S DISEASE
     Dosage: MD 6.5ML, CRD 2.5ML/H, ED 1.6ML
     Route: 050
     Dates: start: 20090422, end: 20150101

REACTIONS (3)
  - Weight decreased [Not Recovered/Not Resolved]
  - Pneumonia [Fatal]
  - Respiratory paralysis [Fatal]

NARRATIVE: CASE EVENT DATE: 2014
